FAERS Safety Report 9293634 (Version 1)
Quarter: 2013Q2

REPORT INFORMATION
  Report Type: Spontaneous
  Country: US (occurrence: US)
  Receive Date: 20130516
  Receipt Date: 20130516
  Transmission Date: 20140414
  Serious: No
  Sender: FDA-Public Use
  Company Number: US-BANPHARM-20120360

PATIENT
  Age: 13 Year
  Sex: Male
  Weight: 122.5 kg

DRUGS (1)
  1. IBUPROFEN CAPSULES 200 MG [Suspect]
     Dosage: 1 DF,
     Route: 048
     Dates: start: 20121109, end: 20121109

REACTIONS (1)
  - Pharyngeal hypoaesthesia [Recovering/Resolving]
